FAERS Safety Report 4312448-4 (Version None)
Quarter: 2004Q1

REPORT INFORMATION
  Report Type: 
  Country: None (occurrence: None)
  Receive Date: 20040305
  Receipt Date: 20040226
  Transmission Date: 20041129
  Serious: Yes (Hospitalization)
  Sender: FDA-Public Use
  Company Number: FR-ROCHE-359987

PATIENT
  Age: 37 Year
  Sex: Male
  Weight: 81 kg

DRUGS (5)
  1. ROCEPHIN [Suspect]
     Indication: DRUG USE FOR UNKNOWN INDICATION
     Dosage: FORMULATION: INJECTABLE SOLUTION.
     Route: 042
     Dates: start: 20030808, end: 20030820
  2. ZOVIRAX [Suspect]
     Indication: HERPES ZOSTER
     Route: 042
     Dates: start: 20030806, end: 20030813
  3. GENTAMICIN SULFATE [Suspect]
     Indication: DRUG USE FOR UNKNOWN INDICATION
     Dosage: FORMULATION: INJECTABLE SOLUTION.
     Route: 030
     Dates: start: 20030807, end: 20030810
  4. VALACYCLOVIR HCL [Suspect]
     Indication: HERPES ZOSTER
     Route: 048
     Dates: start: 20030814, end: 20030829
  5. VANCOMYCIN [Suspect]
     Indication: DRUG USE FOR UNKNOWN INDICATION
     Dosage: FORMULATION: INJECTABLE SOLUTION.
     Route: 042
     Dates: start: 20030807, end: 20030814

REACTIONS (13)
  - BLOOD LACTATE DEHYDROGENASE INCREASED [None]
  - CHROMATOPSIA [None]
  - CONFUSIONAL STATE [None]
  - DISORIENTATION [None]
  - HAEMODYNAMIC INSTABILITY [None]
  - HAEMOLYTIC ANAEMIA [None]
  - NEPHROTIC SYNDROME [None]
  - RENAL FAILURE ACUTE [None]
  - RESPIRATORY DISTRESS [None]
  - RETINOPATHY [None]
  - THROMBOCYTOPENIA [None]
  - VISION BLURRED [None]
  - VISUAL DISTURBANCE [None]
